FAERS Safety Report 7859778-7 (Version None)
Quarter: 2011Q4

REPORT INFORMATION
  Report Type: 
  Country: None (occurrence: None)
  Receive Date: 20111027
  Receipt Date: 20111020
  Transmission Date: 20120403
  Serious: Yes (Life-Threatening, Hospitalization, Other)
  Sender: FDA-Public Use
  Company Number: GB-PFIZER INC-2011223815

PATIENT
  Age: 29 Year
  Sex: Female
  Weight: 54 kg

DRUGS (1)
  1. DEPO-PROVERA [Suspect]
     Indication: CONTRACEPTION
     Dosage: 3 MONTHLY INJECTIONS
     Dates: start: 19770501, end: 19780501

REACTIONS (7)
  - DIABETES MELLITUS [None]
  - BILIARY COLIC [None]
  - HEPATITIS CHRONIC ACTIVE [None]
  - WEIGHT DECREASED [None]
  - DIABETIC COMA [None]
  - AMENORRHOEA [None]
  - HYPOGLYCAEMIA [None]
